FAERS Safety Report 14133738 (Version 1)
Quarter: 2017Q4

REPORT INFORMATION
  Report Type: Spontaneous
  Country: US (occurrence: US)
  Receive Date: 20171027
  Receipt Date: 20171027
  Transmission Date: 20180321
  Serious: No
  Sender: FDA-Public Use
  Company Number: US-PFIZER INC-2017454109

PATIENT
  Sex: Female

DRUGS (1)
  1. NICOTROL [Suspect]
     Active Substance: NICOTINE
     Dosage: UNK (SHE ONLY USED 7 CARTRIDGES ON HER FIRST DAY)

REACTIONS (2)
  - Anxiety [Unknown]
  - Emotional disorder [Unknown]
